FAERS Safety Report 10344244 (Version 1)
Quarter: 2014Q3

REPORT INFORMATION
  Report Type: Spontaneous
  Country: BR (occurrence: BR)
  Receive Date: 20140728
  Receipt Date: 20140728
  Transmission Date: 20150326
  Serious: Yes (Other)
  Sender: FDA-Public Use
  Company Number: BR-PFIZER INC-2014203875

PATIENT
  Age: 70 Year
  Sex: Female
  Weight: 52 kg

DRUGS (2)
  1. FRESH TEARS [Concomitant]
     Indication: GLAUCOMA
  2. XALATAN [Suspect]
     Active Substance: LATANOPROST
     Indication: GLAUCOMA
     Dosage: 1 DROP IN EACH EYE/1X/DAY
     Route: 047
     Dates: start: 2005, end: 201311

REACTIONS (1)
  - Eye disorder [Recovered/Resolved]

NARRATIVE: CASE EVENT DATE: 201311
